FAERS Safety Report 8493924-X (Version None)
Quarter: 2012Q3

REPORT INFORMATION
  Report Type: 
  Country: None (occurrence: None)
  Receive Date: 20120709
  Receipt Date: 20120702
  Transmission Date: 20120928
  Serious: Yes (Other)
  Sender: FDA-Public Use
  Company Number: PHHY2012IT057761

PATIENT
  Sex: Male

DRUGS (3)
  1. DIAZEPAM [Suspect]
  2. LORAZEPAM [Suspect]
  3. ALPRAZOLAM [Suspect]

REACTIONS (3)
  - SYNCOPE [None]
  - HEAD INJURY [None]
  - VERTIGO [None]
